FAERS Safety Report 9216257 (Version 2)
Quarter: 2013Q3

REPORT INFORMATION
  Report Type: Spontaneous
  Country: US (occurrence: US)
  Receive Date: 20130408
  Receipt Date: 20130730
  Transmission Date: 20140515
  Serious: Yes (Hospitalization)
  Sender: FDA-Public Use
  Company Number: US-BAYER-2013-043513

PATIENT
  Age: 31 Year
  Sex: Female

DRUGS (5)
  1. YAZ [Suspect]
     Dosage: UNK
     Route: 048
     Dates: start: 201101, end: 20110318
  2. BEYAZ [Suspect]
     Dosage: UNK
     Route: 048
     Dates: start: 20110119, end: 20110318
  3. BACTROBAN [Concomitant]
  4. CIPRO [Concomitant]
  5. DEPO PROVERA [Concomitant]

REACTIONS (5)
  - Pulmonary embolism [Recovered/Resolved]
  - Pulmonary infarction [None]
  - Injury [Recovered/Resolved]
  - Pain [Recovered/Resolved]
  - Pain [None]
